FAERS Safety Report 4320283-6 (Version None)
Quarter: 2004Q1

REPORT INFORMATION
  Report Type: 
  Country: None (occurrence: None)
  Receive Date: 20040317
  Receipt Date: 20040303
  Transmission Date: 20041129
  Serious: Yes (Other)
  Sender: FDA-Public Use
  Company Number: 2004013322

PATIENT
  Age: 63 Year
  Sex: Male
  Weight: 68 kg

DRUGS (8)
  1. ZITHROMAC (AZITHROMYCIN) [Suspect]
     Indication: COUGH
     Dosage: 250 MG, ORAL
     Route: 048
     Dates: start: 20031208, end: 20031210
  2. THEOPHYLLINE [Suspect]
     Indication: COUGH
     Dosage: 100 MG, ORAL
     Route: 048
     Dates: start: 20031208, end: 20031214
  3. LOXOPROFEN SODIUM (LOXOPROFEN SODIUM) [Concomitant]
  4. CARBOCISTEINE (CARBOCISTEINE) [Concomitant]
  5. DEXTROMETHORPHAN HYDROBROMIDE (DEXTROMETHORPHAN HYDROBROMDE) [Concomitant]
  6. TOSUFLOXACIN TOSILATE (TOSUFLOXACIN TOSILATE) [Concomitant]
  7. DOMPERIDONE  (DOMPERIDONE) [Concomitant]
  8. STREPTOCOCCUS FAECALIS  (STREPTOCOCCUS FAECALIS) [Concomitant]

REACTIONS (7)
  - ALANINE AMINOTRANSFERASE INCREASED [None]
  - ANOREXIA [None]
  - ASPARTATE AMINOTRANSFERASE INCREASED [None]
  - COUGH [None]
  - PYREXIA [None]
  - RHABDOMYOLYSIS [None]
  - WHITE BLOOD CELL COUNT DECREASED [None]
